FAERS Safety Report 7709118-9 (Version None)
Quarter: 2011Q3

REPORT INFORMATION
  Report Type: 
  Country: None (occurrence: None)
  Receive Date: 20110825
  Receipt Date: 20110815
  Transmission Date: 20111222
  Serious: Yes (Other)
  Sender: FDA-Public Use
  Company Number: PHHY2011MY15860

PATIENT
  Age: 37 Year
  Sex: Female

DRUGS (5)
  1. HERCEPTIN [Concomitant]
  2. ZOMETA [Suspect]
     Indication: METASTASES TO BONE
     Dosage: 4 MG, EVERY 3 WEEKS
     Route: 042
     Dates: end: 20101101
  3. ADRIAMYCIN + CYCLOPHOSPHAMIDE [Concomitant]
  4. TAXOL [Concomitant]
  5. ARIMIDEX [Concomitant]

REACTIONS (2)
  - OSTEOMYELITIS [None]
  - BONE DISORDER [None]
